FAERS Safety Report 6073274-1 (Version None)
Quarter: 2009Q1

REPORT INFORMATION
  Report Type: 
  Country: None (occurrence: None)
  Receive Date: 20090211
  Receipt Date: 20090130
  Transmission Date: 20090719
  Serious: Yes (Other)
  Sender: FDA-Public Use
  Company Number: PHHY2009CL03373

PATIENT
  Age: 71 Year
  Sex: Male

DRUGS (3)
  1. TAREG D [Suspect]
     Indication: HYPERTENSION
     Dosage: 1 DF, QD
     Route: 048
     Dates: start: 20070601
  2. HIPOGLUCIN [Concomitant]
  3. RANITIDINE [Concomitant]

REACTIONS (3)
  - CEREBRAL THROMBOSIS [None]
  - GAIT DISTURBANCE [None]
  - HYPOAESTHESIA [None]
